FAERS Safety Report 6419997-3 (Version None)
Quarter: 2009Q4

REPORT INFORMATION
  Report Type: 
  Country: None (occurrence: None)
  Receive Date: 20091029
  Receipt Date: 20091014
  Transmission Date: 20100525
  Serious: Yes (Hospitalization, Other)
  Sender: FDA-Public Use
  Company Number: JP-PFIZER INC-2009259208

PATIENT
  Age: 54 Year

DRUGS (10)
  1. MIGLITOL [Suspect]
     Indication: TYPE 2 DIABETES MELLITUS
     Dosage: UNK
     Route: 048
     Dates: start: 20090808, end: 20090810
  2. FERROMIA [Suspect]
     Indication: ANAEMIA
     Dosage: UNK
     Route: 048
     Dates: start: 20090808, end: 20090810
  3. CRAVIT [Concomitant]
     Indication: POST PROCEDURAL INFECTION
     Dosage: 400 MG, UNK
     Route: 048
     Dates: start: 20090810, end: 20090811
  4. ASPIRIN [Concomitant]
     Indication: VASCULAR GRAFT
     Dosage: 100 MG, UNK
     Route: 048
  5. LASIX [Concomitant]
     Indication: BLOOD PRESSURE MANAGEMENT
     Dosage: 40 MG, UNK
     Route: 048
  6. ALDACTONE [Concomitant]
     Indication: BLOOD PRESSURE MANAGEMENT
     Dosage: 25 MG, UNK
     Route: 048
     Dates: end: 20090815
  7. SIGMART [Concomitant]
     Indication: BLOOD PRESSURE MANAGEMENT
     Dosage: 15 MG, UNK
     Route: 048
     Dates: end: 20090815
  8. OMEPRAL [Concomitant]
     Indication: PROPHYLAXIS
     Dosage: 20 MG, UNK
     Route: 048
     Dates: end: 20090809
  9. CINAL [Concomitant]
     Dosage: 400 MG, UNK
     Route: 048
     Dates: start: 20090808, end: 20090810
  10. GASTER D [Concomitant]
     Indication: PROPHYLAXIS
     Dosage: 20 MG, UNK
     Route: 048
     Dates: start: 20090810

REACTIONS (6)
  - ALANINE AMINOTRANSFERASE INCREASED [None]
  - ASPARTATE AMINOTRANSFERASE INCREASED [None]
  - BLOOD ALKALINE PHOSPHATASE INCREASED [None]
  - BLOOD LACTATE DEHYDROGENASE INCREASED [None]
  - GAMMA-GLUTAMYLTRANSFERASE INCREASED [None]
  - HEPATIC FUNCTION ABNORMAL [None]
